FAERS Safety Report 9580753 (Version 1)
Quarter: 2013Q4

REPORT INFORMATION
  Report Type: Spontaneous
  Country: US (occurrence: None)
  Receive Date: 20131001
  Receipt Date: 20131001
  Transmission Date: 20140711
  Serious: Yes (Other)
  Sender: FDA-Public Use
  Company Number: None

PATIENT
  Age: 6 Year
  Sex: Male
  Weight: 26.31 kg

DRUGS (1)
  1. DAYTRANA PATCH 20 MG ? [Suspect]
     Indication: ATTENTION DEFICIT/HYPERACTIVITY DISORDER
     Dosage: 1 PATCH, APPLIED AS MEDICATED PATCH TO SKIN
     Route: 061
     Dates: start: 20130929, end: 20130929

REACTIONS (3)
  - Tic [None]
  - Tongue disorder [None]
  - Dyskinesia [None]
